FAERS Safety Report 9164970 (Version 2)
Quarter: 2013Q2

REPORT INFORMATION
  Report Type: Spontaneous
  Country: US (occurrence: US)
  Receive Date: 20130315
  Receipt Date: 20130507
  Transmission Date: 20140414
  Serious: Yes (Other)
  Sender: FDA-Public Use
  Company Number: US-PERRIGO-13US002414

PATIENT
  Age: 74 Year
  Sex: Male
  Weight: 99.77 kg

DRUGS (11)
  1. TUSSIN DM CLR LIQ 578 [Suspect]
     Indication: COUGH
     Dosage: 10 ML, EVERY 4 HOURS
     Route: 048
     Dates: start: 20130222
  2. TUSSIN DM CLR LIQ 578 [Suspect]
     Dosage: UNK
     Route: 065
  3. COUMADIN [Concomitant]
     Indication: ANTICOAGULANT THERAPY
     Dosage: 2.5 MG, QD
     Route: 065
     Dates: start: 1994
  4. GLYBURIDE [Concomitant]
     Indication: DIABETES MELLITUS
     Dosage: 1.25 MG, UNKNOWN
     Route: 065
     Dates: start: 2012
  5. POTASSIUM CHLORIDE [Concomitant]
     Indication: SUPPLEMENTATION THERAPY
     Dosage: UNK
     Route: 065
     Dates: start: 2008
  6. ULORIC [Concomitant]
     Indication: RENAL IMPAIRMENT
     Dosage: 40 MG, UNKNOWN
     Route: 065
     Dates: start: 201202
  7. ALDACTONE [Concomitant]
     Indication: CARDIAC DISORDER
     Dosage: UNK
     Route: 065
     Dates: start: 2012
  8. FUROSEMIDE [Concomitant]
     Indication: FLUID RETENTION
     Dosage: UNK
     Route: 065
     Dates: start: 2012
  9. AMIODARONE [Concomitant]
     Indication: HYPERTENSION
     Dosage: 200 MG
     Route: 065
     Dates: start: 2012
  10. TESSALON PERLE [Concomitant]
     Indication: COUGH
     Dosage: 100 MG, UNKNOWN
     Route: 065
     Dates: start: 201302
  11. FLUOXETINE [Concomitant]
     Indication: DEPRESSION
     Dosage: 20 MG, UNKNOWN
     Route: 065
     Dates: start: 20130301

REACTIONS (3)
  - Ageusia [Not Recovered/Not Resolved]
  - Prothrombin time prolonged [Not Recovered/Not Resolved]
  - Incorrect drug administration duration [Not Recovered/Not Resolved]
